FAERS Safety Report 9630915 (Version 1)
Quarter: 2013Q4

REPORT INFORMATION
  Report Type: Spontaneous
  Country: FR (occurrence: FR)
  Receive Date: 20131018
  Receipt Date: 20131018
  Transmission Date: 20140711
  Serious: Yes (Death, Other)
  Sender: FDA-Public Use
  Company Number: FR-PFIZER INC-2013298117

PATIENT
  Age: 69 Year
  Sex: Male

DRUGS (7)
  1. AMIODARONE HCL [Suspect]
     Indication: ARRHYTHMIA
     Dosage: 200 MG, EVERY CYCLE
     Route: 048
     Dates: end: 20130902
  2. FLECAINE [Suspect]
     Indication: ARRHYTHMIA
     Dosage: UNK
     Route: 048
     Dates: end: 20130907
  3. AXELER [Concomitant]
     Dosage: UNK
  4. EFFERALGAN [Concomitant]
     Dosage: UNK
  5. HYDROCHLOROTHIAZIDE/NEBIVOLOL HYDROCHLORIDE [Concomitant]
     Dosage: UNK
  6. GAVISCON [Concomitant]
     Dosage: UNK
  7. VASTEN [Concomitant]
     Dosage: UNK

REACTIONS (3)
  - Death [Fatal]
  - Cough [Not Recovered/Not Resolved]
  - Hyperthyroidism [Not Recovered/Not Resolved]
